FAERS Safety Report 7642112-5 (Version None)
Quarter: 2011Q3

REPORT INFORMATION
  Report Type: 
  Country: None (occurrence: None)
  Receive Date: 20110728
  Receipt Date: 20110721
  Transmission Date: 20111222
  Serious: Yes (Death)
  Sender: FDA-Public Use
  Company Number: US-ELI_LILLY_AND_COMPANY-US201107006808

PATIENT
  Sex: Male

DRUGS (2)
  1. ALIMTA [Suspect]
     Dosage: 1000 MG, UNK
     Route: 042
     Dates: start: 20100504
  2. CISPLATIN [Concomitant]
     Indication: LUNG DISORDER
     Dosage: 40 MG, UNK
     Route: 042
     Dates: start: 20100504

REACTIONS (1)
  - DEATH [None]
